FAERS Safety Report 4535715-8 (Version None)
Quarter: 2004Q4

REPORT INFORMATION
  Report Type: 
  Country: None (occurrence: None)
  Receive Date: 20041223
  Receipt Date: 20031229
  Transmission Date: 20050328
  Serious: No
  Sender: FDA-Public Use
  Company Number: US-GLAXOSMITHKLINE-A0490767A

PATIENT
  Age: 46 Year
  Sex: Female

DRUGS (2)
  1. FLONASE [Suspect]
     Indication: ILL-DEFINED DISORDER
     Dosage: 2SPR PER DAY
     Route: 045
     Dates: start: 20031101, end: 20031101
  2. SYNTHROID [Concomitant]

REACTIONS (3)
  - LACRIMATION INCREASED [None]
  - PARAESTHESIA [None]
  - SNEEZING [None]
